FAERS Safety Report 9182810 (Version 1)
Quarter: 2013Q1

REPORT INFORMATION
  Report Type: Spontaneous
  Country: US (occurrence: US)
  Receive Date: 20130322
  Receipt Date: 20130322
  Transmission Date: 20140127
  Serious: Yes (Hospitalization)
  Sender: FDA-Public Use
  Company Number: US-BRISTOL-MYERS SQUIBB COMPANY-17185026

PATIENT
  Age: 48 Year
  Sex: Male

DRUGS (1)
  1. ERBITUX [Suspect]
     Indication: HEAD AND NECK CANCER METASTATIC
     Dosage: RECEIVED 8 WEEKLY TREATMENTS OF 250 MG/M2
     Dates: start: 20120928

REACTIONS (2)
  - Cellulitis [Unknown]
  - Pain [Unknown]
